FAERS Safety Report 9361240 (Version 2)
Quarter: 2013Q3

REPORT INFORMATION
  Report Type: Spontaneous
  Country: US (occurrence: US)
  Receive Date: 20130621
  Receipt Date: 20130803
  Transmission Date: 20140515
  Serious: No
  Sender: FDA-Public Use
  Company Number: US-009507513-1306USA009185

PATIENT
  Age: 50 Year
  Sex: Female
  Weight: 91.16 kg

DRUGS (13)
  1. VICTRELIS [Suspect]
     Indication: HEPATITIS C
     Dosage: 800 MG, TID
     Route: 048
     Dates: start: 20130401, end: 20130607
  2. PEGINTRON [Suspect]
     Indication: CHRONIC HEPATITIS C
     Dosage: 150 MICROGRAM, QW
     Route: 058
  3. REBETOL [Suspect]
     Indication: CHRONIC HEPATITIS C
     Dosage: 3 DF, BID X 30 DAYS
     Route: 048
  4. EPOETIN ALFA [Concomitant]
     Indication: ANAEMIA
     Dosage: 40000UNITS/ML, 1 DOSE INJECTABLE ONCE A WEEK FOR 30 DAYS
  5. DELSYM [Concomitant]
     Indication: COUGH
     Dosage: 12 HOUR COUGH RELIEF 30MG/5ML SUSPENSION,EXTENDED RELEASE
     Route: 048
  6. FLONASE [Concomitant]
     Indication: HYPERSENSITIVITY
     Dosage: 50MCG/INH SPRAY,2 SPRAYS
     Route: 045
  7. ZYRTEC [Concomitant]
     Indication: HYPERSENSITIVITY
     Dosage: 1 DF, HS
     Route: 048
  8. AZELASTINE HYDROCHLORIDE [Concomitant]
     Indication: HYPERSENSITIVITY
     Dosage: 137 MCG/INH SPRAY: 2 SPRAYS
     Route: 045
  9. HYDROCHLOROTHIAZIDE [Concomitant]
     Indication: HYPERTENSION
     Dosage: 1 DF, QD
     Route: 048
  10. ESOMEPRAZOLE [Concomitant]
     Indication: GASTROOESOPHAGEAL REFLUX DISEASE
     Dosage: 1 DF, QD
  11. AMITRIPTYLINE HYDROCHLORIDE [Concomitant]
     Indication: DEPRESSION
     Dosage: 1 DF, HS
  12. AMITRIPTYLINE HYDROCHLORIDE [Concomitant]
     Indication: NIGHT SWEATS
  13. AMITRIPTYLINE HYDROCHLORIDE [Concomitant]
     Indication: HOT FLUSH

REACTIONS (2)
  - Fatigue [Recovered/Resolved]
  - Influenza like illness [Recovered/Resolved]
